FAERS Safety Report 7630123-5 (Version None)
Quarter: 2011Q3

REPORT INFORMATION
  Report Type: 
  Country: None (occurrence: None)
  Receive Date: 20110722
  Receipt Date: 20110708
  Transmission Date: 20111222
  Serious: Yes (Hospitalization)
  Sender: FDA-Public Use
  Company Number: NL-JNJFOC-20110708415

PATIENT
  Age: 11 Year
  Sex: Male

DRUGS (2)
  1. ZYRTEC [Suspect]
     Indication: URTICARIA
     Route: 048
     Dates: end: 20110101
  2. ZYRTEC [Suspect]
     Route: 048

REACTIONS (3)
  - PALLOR [None]
  - LOSS OF CONSCIOUSNESS [None]
  - BLOOD PRESSURE DECREASED [None]
